FAERS Safety Report 6376149-3 (Version None)
Quarter: 2009Q3

REPORT INFORMATION
  Report Type: 
  Country: None (occurrence: None)
  Receive Date: 20090921
  Receipt Date: 20090911
  Transmission Date: 20100115
  Serious: Yes (Other)
  Sender: FDA-Public Use
  Company Number: 2009US003445

PATIENT
  Age: 63 Year
  Sex: Female

DRUGS (2)
  1. AMBISOME [Suspect]
     Indication: FUNGAL INFECTION
     Dosage: 240 MG, UID/QD, IV NOS; 125 MG, UID/QD, IV NOS
     Route: 042
     Dates: start: 20090601, end: 20090809
  2. AMBISOME [Suspect]
     Indication: FUNGAL INFECTION
     Dosage: 240 MG, UID/QD, IV NOS; 125 MG, UID/QD, IV NOS
     Route: 042
     Dates: start: 20090810, end: 20090827

REACTIONS (1)
  - DELIRIUM [None]
